FAERS Safety Report 19580543 (Version 1)
Quarter: 2021Q3

REPORT INFORMATION
  Report Type: Spontaneous
  Country: US (occurrence: US)
  Receive Date: 20210720
  Receipt Date: 20210720
  Transmission Date: 20211014
  Serious: Yes (Death, Hospitalization)
  Sender: FDA-Public Use
  Company Number: US-CADILA HEALTHCARE LIMITED-US-ZYDUS-067968

PATIENT

DRUGS (1)
  1. COLCHICINE. [Suspect]
     Active Substance: COLCHICINE
     Indication: PAIN
     Dosage: 0.6 MILLIGRAM 45 TABLET
     Route: 048

REACTIONS (7)
  - Diarrhoea [Unknown]
  - Overdose [Unknown]
  - Back pain [Unknown]
  - Toxicity to various agents [Fatal]
  - Aspiration [Unknown]
  - Vomiting [Unknown]
  - Abdominal pain [Unknown]
